FAERS Safety Report 5027598-7 (Version None)
Quarter: 2006Q2

REPORT INFORMATION
  Report Type: 
  Country: None (occurrence: None)
  Receive Date: 20060616
  Receipt Date: 20060607
  Transmission Date: 20061013
  Serious: Yes (Other)
  Sender: FDA-Public Use
  Company Number: PHMT2006CA01335

PATIENT

DRUGS (1)
  1. DIOVAN [Suspect]
     Dates: end: 20060519

REACTIONS (5)
  - ANXIETY [None]
  - BLOOD PRESSURE INCREASED [None]
  - HEART RATE INCREASED [None]
  - PALPITATIONS [None]
  - PANIC ATTACK [None]
